FAERS Safety Report 7798438-8 (Version None)
Quarter: 2011Q4

REPORT INFORMATION
  Report Type: 
  Country: None (occurrence: None)
  Receive Date: 20111005
  Receipt Date: 20110928
  Transmission Date: 20120403
  Serious: Yes (Other)
  Sender: FDA-Public Use
  Company Number: US-AMGEN-USASP2011047834

PATIENT
  Age: 54 Year
  Sex: Male
  Weight: 53 kg

DRUGS (13)
  1. PEGASYS [Concomitant]
     Dosage: 180 MUG, UNK
     Route: 058
  2. NOVOLOG [Concomitant]
  3. PRILOSEC [Concomitant]
  4. GABAPENTIN [Concomitant]
     Dosage: 800 MG, BID
     Route: 048
  5. TRUVADA [Concomitant]
  6. INTELENCE [Concomitant]
     Dosage: 200 MG, BID
     Route: 048
  7. NEUPOGEN [Concomitant]
  8. PROCARDIA XL [Concomitant]
     Dosage: 30 MG, QD
     Route: 048
  9. PROCRIT                            /00928302/ [Concomitant]
     Dosage: 60000 IU, QWK
     Route: 058
  10. GLIPIZIDE [Concomitant]
     Route: 048
  11. ISENTRESS [Concomitant]
     Dosage: 1 DF, BID
  12. NPLATE [Suspect]
     Indication: IDIOPATHIC THROMBOCYTOPENIC PURPURA
     Dosage: 10 MUG/KG, UNK
     Dates: start: 20100316, end: 20100712
  13. MULTIVITAMIN                       /00097801/ [Concomitant]
     Dosage: 1 DF, QD
     Route: 048

REACTIONS (1)
  - THROMBOCYTOPENIA [None]
